FAERS Safety Report 12840558 (Version 7)
Quarter: 2017Q1

REPORT INFORMATION
  Report Type: Report from Study
  Country: US (occurrence: US)
  Receive Date: 20161012
  Receipt Date: 20170103
  Transmission Date: 20170428
  Serious: Yes (Other)
  Sender: FDA-Public Use
  Company Number: US-GILEAD-2016-0209410

PATIENT
  Age: 74 Year
  Sex: Female

DRUGS (8)
  1. OXYGEN. [Concomitant]
     Active Substance: OXYGEN
  2. REMODULIN [Concomitant]
     Active Substance: TREPROSTINIL
  3. ADEMPAS [Concomitant]
     Active Substance: RIOCIGUAT
  4. AMBRISENTAN [Suspect]
     Active Substance: AMBRISENTAN
     Indication: PULMONARY HYPERTENSION
     Dosage: 10 MG, QD
     Route: 065
     Dates: start: 20100318
  5. ADCIRCA [Concomitant]
     Active Substance: TADALAFIL
  6. ORENITRAM [Suspect]
     Active Substance: TREPROSTINIL
     Indication: PRODUCT USED FOR UNKNOWN INDICATION
     Dosage: 1 MG, TID
     Route: 065
  7. AMBRISENTAN [Suspect]
     Active Substance: AMBRISENTAN
     Dosage: 10 MG, QD
     Route: 065
  8. ORENITRAM [Suspect]
     Active Substance: TREPROSTINIL
     Dosage: 2.875 MG, TID
     Route: 065
     Dates: start: 20161003

REACTIONS (24)
  - Vein disorder [Not Recovered/Not Resolved]
  - Gastric disorder [Unknown]
  - Dry skin [Unknown]
  - Fungal infection [Not Recovered/Not Resolved]
  - Dizziness [Not Recovered/Not Resolved]
  - Gastrointestinal pain [Unknown]
  - Decreased appetite [Unknown]
  - Feeling abnormal [Unknown]
  - Loss of consciousness [Unknown]
  - Ear infection [Not Recovered/Not Resolved]
  - Palpitations [Unknown]
  - Fatigue [Unknown]
  - Diarrhoea [Recovering/Resolving]
  - Malaise [Recovered/Resolved]
  - Dyschezia [Unknown]
  - Drug dose omission [Recovered/Resolved]
  - Constipation [Unknown]
  - Rash [Unknown]
  - Anxiety [Unknown]
  - Dyspnoea [Unknown]
  - Sinus congestion [Unknown]
  - Abdominal distension [Unknown]
  - Abdominal discomfort [Recovered/Resolved]
  - Gastroenteritis viral [Recovering/Resolving]

NARRATIVE: CASE EVENT DATE: 20160418
